FAERS Safety Report 6074893-9 (Version None)
Quarter: 2009Q1

REPORT INFORMATION
  Report Type: 
  Country: None (occurrence: None)
  Receive Date: 20090212
  Receipt Date: 20090210
  Transmission Date: 20090719
  Serious: Yes (Death, Hospitalization, Other)
  Sender: FDA-Public Use
  Company Number: BR-BRISTOL-MYERS SQUIBB COMPANY-14175566

PATIENT
  Age: 42 Year
  Sex: Female

DRUGS (2)
  1. ORENCIA [Suspect]
     Indication: RHEUMATOID ARTHRITIS
     Dosage: 4 INFUSIONS OF 500MG. LAST INFUSION BEFORE EVENT WAS ON 05-APR-08
     Route: 042
  2. PREDNISONE [Concomitant]
     Dosage: BETWEEN 5MG AND 10MG

REACTIONS (6)
  - BLOOD CREATINE PHOSPHOKINASE INCREASED [None]
  - DEATH [None]
  - GASTROENTERITIS [None]
  - MUSCLE RIGIDITY [None]
  - MUSCULAR WEAKNESS [None]
  - SEPTIC SHOCK [None]
